FAERS Safety Report 8604554 (Version 2)
Quarter: 2012Q4

REPORT INFORMATION
  Report Type: 
  Country: JP (occurrence: JP)
  Receive Date: 20120608
  Receipt Date: 20120830
  Transmission Date: 20130627
  Serious: Yes (Other)
  Sender: FDA-Public Use
  Company Number: PHHY2012JP048604

PATIENT
  Age: 94 Year
  Sex: Female

DRUGS (2)
  1. EXFORGE [Suspect]
     Indication: HYPERTENSION
     Dosage: 1 DF, daily
     Route: 048
  2. EXFORGE [Suspect]
     Dosage: 1 DF, UNK
     Route: 048

REACTIONS (4)
  - Dementia [Recovered/Resolved]
  - Decreased appetite [Unknown]
  - General physical condition abnormal [Unknown]
  - Blood pressure increased [Unknown]
